FAERS Safety Report 9988569 (Version 1)
Quarter: 2014Q1

REPORT INFORMATION
  Report Type: Report from Study
  Country: US (occurrence: US)
  Receive Date: 20140310
  Receipt Date: 20140310
  Transmission Date: 20141002
  Serious: Yes (Other)
  Sender: FDA-Public Use
  Company Number: US-ORION CORPORATION ORION PHARMA-ENTC2014-0092

PATIENT
  Sex: Female

DRUGS (1)
  1. STALEVO [Suspect]
     Route: 048

REACTIONS (2)
  - Parkinson^s disease [Unknown]
  - Confusional state [Unknown]
